FAERS Safety Report 4847824-4 (Version None)
Quarter: 2005Q4

REPORT INFORMATION
  Report Type: 
  Country: None (occurrence: None)
  Receive Date: 20051207
  Receipt Date: 20051130
  Transmission Date: 20060501
  Serious: Yes (Hospitalization, Disabling)
  Sender: FDA-Public Use
  Company Number: US-MERCK-0512USA00354

PATIENT
  Sex: Male
  Weight: 80 kg

DRUGS (6)
  1. VIOXX [Suspect]
     Indication: ARTHRITIS
     Route: 048
     Dates: start: 19991201, end: 20031018
  2. ULTRAM [Concomitant]
     Route: 065
  3. ZANAFLEX [Concomitant]
     Route: 065
  4. BEXTRA [Concomitant]
     Route: 065
  5. HYDROCODONE BITARTRATE [Concomitant]
     Route: 065
  6. TIZANIDINE HYDROCHLORIDE [Concomitant]
     Route: 065

REACTIONS (1)
  - MYOCARDIAL INFARCTION [None]
